FAERS Safety Report 15144936 (Version 1)
Quarter: 2018Q3

REPORT INFORMATION
  Report Type: Spontaneous
  Country: US (occurrence: US)
  Receive Date: 20180713
  Receipt Date: 20180713
  Transmission Date: 20181010
  Serious: No
  Sender: FDA-Public Use
  Company Number: US-CHILTERN-US-2018-000011

PATIENT
  Sex: Male

DRUGS (3)
  1. RHOPRESSA [Suspect]
     Active Substance: NETARSUDIL MESYLATE
     Indication: GLAUCOMA
     Dosage: 1 GTT, QD
     Route: 047
     Dates: start: 20180510
  2. LUMIGAN [Concomitant]
     Active Substance: BIMATOPROST
     Dosage: BOTH EYES
     Route: 047
  3. DORZOLAMIDE [Concomitant]
     Active Substance: DORZOLAMIDE
     Dosage: BOTH EYES
     Route: 047

REACTIONS (1)
  - Intraocular pressure increased [Unknown]
